FAERS Safety Report 4288581-2 (Version None)
Quarter: 2004Q1

REPORT INFORMATION
  Report Type: 
  Country: None (occurrence: None)
  Receive Date: 20040205
  Receipt Date: 20040116
  Transmission Date: 20041129
  Serious: Yes (Life-Threatening, Hospitalization)
  Sender: FDA-Public Use
  Company Number: F01200400104

PATIENT
  Age: 76 Year
  Sex: Female

DRUGS (4)
  1. (OXALIPLATIN) [Suspect]
     Dosage: 1200 MG Q2W, INTRAVENOUS NOS
     Route: 042
     Dates: start: 20031105, end: 20031105
  2. FLUOROURACIL [Suspect]
     Dosage: 462 MG BOLUS AND 770 MG CONTINUOUS INFUSION IV
     Route: 042
     Dates: start: 20031105, end: 20031105
  3. LEUCOVORIN [Suspect]
     Dosage: INTRAVENOUS NOS
     Route: 040
     Dates: start: 20031105, end: 20031105
  4. PTK787/ZK 222584 OR PLACEBO [Concomitant]
     Indication: COLORECTAL CANCER METASTATIC
     Dosage: 1250 MG Q2W, ORAL
     Route: 048
     Dates: start: 20030709, end: 20031105

REACTIONS (11)
  - ABDOMINAL PAIN [None]
  - ANOREXIA [None]
  - BACK PAIN [None]
  - COLORECTAL CANCER METASTATIC [None]
  - DIARRHOEA [None]
  - DISEASE RECURRENCE [None]
  - MALIGNANT NEOPLASM PROGRESSION [None]
  - PANCYTOPENIA [None]
  - SMALL INTESTINAL OBSTRUCTION [None]
  - URINARY TRACT INFECTION [None]
  - VOMITING [None]
